FAERS Safety Report 13983769 (Version 1)
Quarter: 2017Q3

REPORT INFORMATION
  Report Type: Spontaneous
  Country: DE (occurrence: DE)
  Receive Date: 20170918
  Receipt Date: 20170918
  Transmission Date: 20171128
  Serious: Yes (Other)
  Sender: FDA-Public Use
  Company Number: DE-BAYER-2017-005751

PATIENT
  Age: 13 Year
  Sex: Female
  Weight: 57 kg

DRUGS (1)
  1. MIRENA [Suspect]
     Active Substance: LEVONORGESTREL
     Dosage: 20 MCG/24HR, CONT
     Route: 015
     Dates: start: 20161111

REACTIONS (6)
  - Complication of pregnancy [None]
  - Kidney congestion [None]
  - Pregnancy with contraceptive device [Recovered/Resolved]
  - Vacuum extractor delivery [None]
  - Embedded device [None]
  - Medication error [None]

NARRATIVE: CASE EVENT DATE: 20161111
